FAERS Safety Report 14843938 (Version 2)
Quarter: 2018Q2

REPORT INFORMATION
  Report Type: Spontaneous
  Country: IT (occurrence: IT)
  Receive Date: 20180503
  Receipt Date: 20180515
  Transmission Date: 20180711
  Serious: Yes (Other)
  Sender: FDA-Public Use
  Company Number: IT-UCBSA-2018019554

PATIENT
  Age: 44 Year
  Sex: Female

DRUGS (2)
  1. DEPAKIN [Suspect]
     Active Substance: VALPROATE SODIUM
     Indication: EPILEPSY
     Dosage: 500 MG A DAY
     Route: 048
  2. VIMPAT [Suspect]
     Active Substance: LACOSAMIDE
     Indication: EPILEPSY
     Dosage: 200 MG DAILY
     Route: 048

REACTIONS (5)
  - Disorganised speech [Unknown]
  - Hyperammonaemia [Unknown]
  - Aphasia [Unknown]
  - Tonic clonic movements [Unknown]
  - Gaze palsy [Unknown]

NARRATIVE: CASE EVENT DATE: 20171017
